FAERS Safety Report 17084736 (Version 2)
Quarter: 2020Q2

REPORT INFORMATION
  Report Type: Report from Study
  Country: US (occurrence: US)
  Receive Date: 20191127
  Receipt Date: 20200420
  Transmission Date: 20200713
  Serious: Yes (Hospitalization, Disabling)
  Sender: FDA-Public Use
  Company Number: US-ACTELION-A-US2017-164656

PATIENT
  Sex: Female

DRUGS (5)
  1. LOSARTAN. [Concomitant]
     Active Substance: LOSARTAN
  2. CLONIDINE. [Concomitant]
     Active Substance: CLONIDINE
     Dosage: 0.1 MG, BID
  3. OPSUMIT [Suspect]
     Active Substance: MACITENTAN
     Indication: PULMONARY ARTERIAL HYPERTENSION
     Dosage: 10 MG, QD
     Route: 048
     Dates: start: 20171109
  4. OPSUMIT [Suspect]
     Active Substance: MACITENTAN
     Indication: DYSPNOEA
     Dosage: 10 MG, QD
     Route: 048
     Dates: start: 201611
  5. AMLODIPINE [Concomitant]
     Active Substance: AMLODIPINE BESYLATE
     Dosage: 10 MG, QD

REACTIONS (9)
  - Rehabilitation therapy [Not Recovered/Not Resolved]
  - Unevaluable event [Unknown]
  - Incorrect dose administered [Unknown]
  - Oral infection [Unknown]
  - Tooth infection [Unknown]
  - Exercise tolerance decreased [Unknown]
  - Therapy non-responder [Unknown]
  - Impaired quality of life [Unknown]
  - Hospitalisation [Unknown]

NARRATIVE: CASE EVENT DATE: 2016
